FAERS Safety Report 12548182 (Version 3)
Quarter: 2016Q3

REPORT INFORMATION
  Report Type: Spontaneous
  Country: US (occurrence: US)
  Receive Date: 20160712
  Receipt Date: 20160916
  Transmission Date: 20161109
  Serious: Yes (Other)
  Sender: FDA-Public Use
  Company Number: US-PFIZER INC-2016334406

PATIENT
  Age: 53 Year
  Sex: Female

DRUGS (3)
  1. FASLODEX [Concomitant]
     Active Substance: FULVESTRANT
     Dosage: UNK
     Dates: start: 20160622
  2. IBRANCE [Suspect]
     Active Substance: PALBOCICLIB
     Dosage: 125 MG, UNK
     Dates: start: 20160616
  3. IBRANCE [Suspect]
     Active Substance: PALBOCICLIB
     Dosage: 125 MG, UNK
     Dates: start: 20160622

REACTIONS (15)
  - Fatigue [Unknown]
  - Nausea [Unknown]
  - Blister [Unknown]
  - Chest pain [Recovered/Resolved]
  - Rash [Unknown]
  - Bone pain [Unknown]
  - Pain [Unknown]
  - Thrombosis [Unknown]
  - Wound complication [Unknown]
  - Alopecia [Unknown]
  - Decreased appetite [Unknown]
  - Abdominal pain upper [Unknown]
  - Constipation [Unknown]
  - Paraesthesia [Unknown]
  - Wound secretion [Unknown]

NARRATIVE: CASE EVENT DATE: 2016
